FAERS Safety Report 10163066 (Version 2)
Quarter: 2014Q2

REPORT INFORMATION
  Report Type: Report from Study
  Country: GB (occurrence: GB)
  Receive Date: 20140509
  Receipt Date: 20140509
  Transmission Date: 20141212
  Serious: Yes (Other)
  Sender: FDA-Public Use
  Company Number: GB-BAYER-2012-023045

PATIENT
  Age: 53 Year
  Sex: Female
  Weight: 75 kg

DRUGS (20)
  1. RIOCIGUAT (GUANYLATE CYCLASE STIMULATOR) [Suspect]
     Indication: PULMONARY ARTERIAL HYPERTENSION
     Dosage: EXTENSION
     Dates: start: 20100611, end: 20100621
  2. RIOCIGUAT (GUANYLATE CYCLASE STIMULATOR) [Suspect]
     Indication: PULMONARY ARTERIAL HYPERTENSION
     Dosage: UNK
     Dates: start: 20100622, end: 20100711
  3. RIOCIGUAT (GUANYLATE CYCLASE STIMULATOR) [Suspect]
     Indication: PULMONARY ARTERIAL HYPERTENSION
     Dosage: UNK
     Dates: start: 20100712, end: 20100719
  4. RIOCIGUAT (GUANYLATE CYCLASE STIMULATOR) [Suspect]
     Indication: PULMONARY ARTERIAL HYPERTENSION
     Dosage: UNK
     Dates: start: 20100720, end: 20100803
  5. RIOCIGUAT (GUANYLATE CYCLASE STIMULATOR) [Suspect]
     Indication: PULMONARY ARTERIAL HYPERTENSION
     Dosage: 2.5
     Dates: start: 20100804, end: 20100831
  6. RIOCIGUAT (GUANYLATE CYCLASE STIMULATOR) [Suspect]
     Indication: PULMONARY ARTERIAL HYPERTENSION
     Dosage: 2.5
     Dates: start: 20100901, end: 20101213
  7. RIOCIGUAT (GUANYLATE CYCLASE STIMULATOR) [Suspect]
     Indication: PULMONARY ARTERIAL HYPERTENSION
     Dosage: 2.5
     Dates: start: 20101214, end: 20110301
  8. RIOCIGUAT (GUANYLATE CYCLASE STIMULATOR) [Suspect]
     Indication: PULMONARY ARTERIAL HYPERTENSION
     Dosage: 2.5
     Dates: start: 20110302, end: 20110524
  9. RIOCIGUAT (GUANYLATE CYCLASE STIMULATOR) [Suspect]
     Indication: PULMONARY ARTERIAL HYPERTENSION
     Dosage: 2.5
     Dates: start: 20110525, end: 20110816
  10. RIOCIGUAT (GUANYLATE CYCLASE STIMULATOR) [Suspect]
     Indication: PULMONARY ARTERIAL HYPERTENSION
     Dosage: 2.5
     Dates: start: 20110817, end: 20111121
  11. RIOCIGUAT (GUANYLATE CYCLASE STIMULATOR) [Suspect]
     Indication: PULMONARY ARTERIAL HYPERTENSION
     Dosage: 2.5
     Dates: start: 20111122, end: 20120305
  12. RIOCIGUAT (GUANYLATE CYCLASE STIMULATOR) [Suspect]
     Indication: PULMONARY ARTERIAL HYPERTENSION
     Dosage: 2
     Dates: start: 20120306, end: 20120314
  13. RIOCIGUAT (GUANYLATE CYCLASE STIMULATOR) [Suspect]
     Indication: PULMONARY ARTERIAL HYPERTENSION
     Dosage: 1.5
     Dates: start: 20120314, end: 20120612
  14. RIOCIGUAT (GUANYLATE CYCLASE STIMULATOR) [Suspect]
     Indication: PULMONARY ARTERIAL HYPERTENSION
     Dosage: 1.5
     Dates: start: 20120612, end: 20120924
  15. RIOCIGUAT (GUANYLATE CYCLASE STIMULATOR) [Suspect]
     Indication: PULMONARY ARTERIAL HYPERTENSION
     Dosage: 2
     Dates: start: 20120925, end: 20121007
  16. RIOCIGUAT (GUANYLATE CYCLASE STIMULATOR) [Suspect]
     Indication: PULMONARY ARTERIAL HYPERTENSION
     Dosage: 2.5
     Dates: start: 20121008
  17. ILOPROST [Concomitant]
     Indication: PULMONARY ARTERIAL HYPERTENSION
     Dosage: TOTAL DAILY DOSE: 70 MCG
     Dates: start: 20120124, end: 20120321
  18. BETNOVATE [Concomitant]
     Indication: DRUG ERUPTION
     Dosage: 1 APPLICATION
     Dates: start: 20111019
  19. DERMOVATE [Concomitant]
     Indication: DRUG ERUPTION
     Dosage: 1 APPLICATION
     Dates: start: 201111
  20. OMEPRAZOLE [Concomitant]

REACTIONS (1)
  - Drug eruption [Recovering/Resolving]
